FAERS Safety Report 9644394 (Version 2)
Quarter: 2013Q4

REPORT INFORMATION
  Report Type: Spontaneous
  Country: US (occurrence: US)
  Receive Date: 20131025
  Receipt Date: 20131106
  Transmission Date: 20140711
  Serious: Yes (Hospitalization, Other)
  Sender: FDA-Public Use
  Company Number: US-MERCK-1310USA008335

PATIENT
  Age: 75 Year
  Sex: Male

DRUGS (3)
  1. INVANZ [Suspect]
     Indication: BACTERIAL INFECTION
     Dosage: 1 G, QD
     Route: 042
     Dates: start: 201309, end: 2013
  2. INVANZ [Suspect]
     Dosage: 1 G, QD
     Route: 042
     Dates: start: 2013, end: 20131014
  3. COUMADIN [Concomitant]

REACTIONS (7)
  - White blood cell count increased [Not Recovered/Not Resolved]
  - Pneumonia [Not Recovered/Not Resolved]
  - Abscess [Not Recovered/Not Resolved]
  - Delirium [Recovered/Resolved]
  - Enterococcal infection [Unknown]
  - Hip surgery [Unknown]
  - Hip arthroplasty [Unknown]
